FAERS Safety Report 4775320-1 (Version None)
Quarter: 2005Q3

REPORT INFORMATION
  Report Type: 
  Country: None (occurrence: None)
  Receive Date: 20050922
  Receipt Date: 20050110
  Transmission Date: 20060218
  Serious: Yes (Disabling)
  Sender: FDA-Public Use
  Company Number: 200510217US

PATIENT
  Sex: Male
  Weight: 94.3 kg

DRUGS (7)
  1. APIDRA [Suspect]
     Indication: DIABETES MELLITUS
     Dosage: DOSE: VARIABLE REGIMEN
     Route: 058
     Dates: start: 20040826, end: 20041121
  2. OPTIPEN (INSULIN PUMP) [Suspect]
  3. LANTUS [Suspect]
     Indication: DIABETES MELLITUS
     Dosage: DOSE UNIT: UNITS
     Route: 058
     Dates: start: 20040826, end: 20041122
  4. BENICAR                                 /USA/ [Concomitant]
     Indication: HYPERTENSION
     Route: 048
     Dates: start: 19960101
  5. TARKA [Concomitant]
     Indication: HYPERTENSION
     Route: 048
     Dates: start: 19960101
  6. TYLENOL [Concomitant]
     Dosage: DOSE: 1 TAB
     Route: 048
     Dates: start: 20040101
  7. CORTICOSTEROIDS FOR SYSTEMIC USE [Concomitant]
     Indication: SHOULDER PAIN
     Dosage: DOSE: UNK
     Route: 030
     Dates: start: 20040907, end: 20040907

REACTIONS (4)
  - BLOOD GLUCOSE INCREASED [None]
  - SHOULDER PAIN [None]
  - VISION BLURRED [None]
  - VITREOUS HAEMORRHAGE [None]
